FAERS Safety Report 9433237 (Version 3)
Quarter: 2013Q3

REPORT INFORMATION
  Report Type: Spontaneous
  Country: JP (occurrence: JP)
  Receive Date: 20130731
  Receipt Date: 20130909
  Transmission Date: 20140515
  Serious: Yes (Hospitalization)
  Sender: FDA-Public Use
  Company Number: JP-GLAXOSMITHKLINE-B0907643A

PATIENT
  Age: 65 Year
  Sex: Female

DRUGS (6)
  1. LAMICTAL [Suspect]
     Indication: BIPOLAR DISORDER
     Dosage: 25MG PER DAY
     Route: 048
     Dates: start: 20130518, end: 20130611
  2. FLOMOX [Suspect]
     Indication: NASOPHARYNGITIS
     Dosage: 100MG THREE TIMES PER DAY
     Route: 048
     Dates: start: 20130531, end: 20130601
  3. LIMAS [Concomitant]
     Indication: MANIA
     Dosage: 200MG THREE TIMES PER DAY
     Route: 048
     Dates: start: 20130312
  4. FLUVOXAMINE MALEATE [Concomitant]
     Indication: DEPRESSION
     Dosage: 25MG TWICE PER DAY
     Route: 048
     Dates: start: 20130309, end: 20130511
  5. LEXAPRO [Concomitant]
     Indication: DEPRESSION
     Dosage: 10MG PER DAY
     Route: 048
     Dates: start: 20130316
  6. PL [Concomitant]
     Indication: NASOPHARYNGITIS
     Dosage: 1G THREE TIMES PER DAY
     Route: 048
     Dates: start: 20130601, end: 20130603

REACTIONS (11)
  - Erythema multiforme [Recovering/Resolving]
  - Pyrexia [Recovered/Resolved]
  - Rash [Unknown]
  - Generalised erythema [Recovering/Resolving]
  - Cough [Recovering/Resolving]
  - Nasopharyngitis [Recovered/Resolved]
  - Drug eruption [Recovering/Resolving]
  - Rash [Recovering/Resolving]
  - Pruritus [Recovering/Resolving]
  - Pruritus generalised [Recovering/Resolving]
  - Viral infection [Unknown]
